FAERS Safety Report 24794383 (Version 2)
Quarter: 2025Q1

REPORT INFORMATION
  Report Type: Spontaneous
  Country: CZ (occurrence: CZ)
  Receive Date: 20241231
  Receipt Date: 20250221
  Transmission Date: 20250408
  Serious: No
  Sender: RANBAXY
  Company Number: CZ-SUN PHARMACEUTICAL INDUSTRIES LTD-2024RR-486934

PATIENT
  Age: 58 Year
  Sex: Female

DRUGS (1)
  1. TILDRAKIZUMAB [Suspect]
     Active Substance: TILDRAKIZUMAB
     Indication: Hidradenitis
     Route: 058
     Dates: start: 20241217

REACTIONS (2)
  - Off label use [Unknown]
  - No adverse event [Unknown]

NARRATIVE: CASE EVENT DATE: 20241217
